FAERS Safety Report 4301895-2 (Version None)
Quarter: 2004Q1

REPORT INFORMATION
  Report Type: 
  Country: None (occurrence: None)
  Receive Date: 20040219
  Receipt Date: 20040211
  Transmission Date: 20041129
  Serious: Yes (Hospitalization)
  Sender: FDA-Public Use
  Company Number: TPA2004A00169

PATIENT
  Age: 52 Year
  Sex: Male
  Weight: 167.3773 kg

DRUGS (19)
  1. ACTOS [Suspect]
     Indication: DIABETES MELLITUS
     Dosage: 15 MG, 1 IN 1 D, PER ORAL
     Route: 048
  2. CEPHALEXIN [Suspect]
     Indication: INFECTION
     Dates: start: 20030701, end: 20030701
  3. CIPROFLOXACIN [Suspect]
     Indication: INFECTION
     Dates: start: 20030801, end: 20030801
  4. AMITRIPTYLINE HCL [Suspect]
     Indication: ASTHENIA
     Dosage: ONCE,
     Dates: start: 20031001, end: 20031001
  5. AMITRIPTYLINE HCL [Suspect]
     Indication: DYSKINESIA
     Dosage: ONCE,
     Dates: start: 20031001, end: 20031001
  6. AMITRIPTYLINE HCL [Suspect]
     Indication: LOCAL SWELLING
     Dosage: ONCE,
     Dates: start: 20031001, end: 20031001
  7. AMITRIPTYLINE HCL [Suspect]
     Indication: SENSORY LOSS
     Dosage: ONCE,
     Dates: start: 20031001, end: 20031001
  8. AMITRIPTYLINE HCL [Suspect]
     Indication: SWELLING
     Dosage: ONCE,
     Dates: start: 20031001, end: 20031001
  9. AMITRIPTYLINE HCL [Suspect]
     Indication: SWELLING FACE
     Dosage: ONCE,
     Dates: start: 20031001, end: 20031001
  10. PLAVIX (CLOPIDOGREL SULFATE) (75 MILLIGRAM) [Concomitant]
  11. NOVOLIN R [Concomitant]
  12. NOVOLIN N [Concomitant]
  13. LDESCOL (FLUVASTATIN) (40 MILLIGRAM) [Concomitant]
  14. LOTENSIN [Concomitant]
  15. ZANTAC (RANITIDINE HYDROCHLORIDE) (150 MILLIGRAM) [Concomitant]
  16. PAXIL (PAROXETINE HYDROCHLLORIDE) (150 MILLIGRAM) [Concomitant]
  17. NAPROXEN (NAPROXEN) (500 MILLIGRAM) [Concomitant]
  18. ALPRAZOLAM (ALPRAZOLAM) (0.25 MILLIGRAM) [Concomitant]
  19. VIAGRA [Concomitant]

REACTIONS (19)
  - ARTHROPOD BITE [None]
  - ASTHENIA [None]
  - BLOOD PRESSURE INCREASED [None]
  - CARDIAC DISORDER [None]
  - DYSKINESIA [None]
  - FACIAL PALSY [None]
  - HEADACHE [None]
  - HERPES ZOSTER [None]
  - INTERTRIGO [None]
  - JOINT SWELLING [None]
  - LOCAL SWELLING [None]
  - NAUSEA [None]
  - PAIN [None]
  - PRURITUS [None]
  - SENSORY LOSS [None]
  - SWELLING FACE [None]
  - TREMOR [None]
  - VISION BLURRED [None]
  - VOMITING [None]
